FAERS Safety Report 7724207 (Version 8)
Quarter: 2012Q4

REPORT INFORMATION
  Report Type: 
  Country: JP (occurrence: JP)
  Receive Date: 20101221
  Receipt Date: 20120910
  Transmission Date: 20130627
  Serious: Yes (Hospitalization, Other)
  Sender: FDA-Public Use
  Company Number: JP-CELGENEUS-087-21880-10100394

PATIENT
  Age: 73 Year
  Sex: Female
  Weight: 39.9 kg

DRUGS (34)
  1. REVLIMID [Suspect]
     Indication: MULTIPLE MYELOMA
     Dosage: 5 Milligram
     Route: 048
     Dates: start: 20100827, end: 20100916
  2. REVLIMID [Suspect]
     Dosage: 5 Milligram
     Route: 048
     Dates: start: 20100928, end: 20101019
  3. REVLIMID [Suspect]
     Dosage: 10 Milligram
     Route: 048
     Dates: start: 20101026, end: 20101116
  4. REVLIMID [Suspect]
     Dosage: 10 Milligram
     Route: 048
     Dates: start: 20101126, end: 20101216
  5. REVLIMID [Suspect]
     Dosage: 10 Milligram
     Route: 048
     Dates: start: 20110326, end: 20110415
  6. REVLIMID [Suspect]
     Dosage: 10 Milligram
     Route: 048
     Dates: start: 20110428, end: 20110518
  7. REVLIMID [Suspect]
     Dosage: 10 Milligram
     Route: 048
     Dates: start: 20110526, end: 20110615
  8. LENADEX [Suspect]
     Indication: MULTIPLE MYELOMA
     Dosage: 20 Milligram
     Route: 048
     Dates: start: 20100827, end: 20100830
  9. LENADEX [Suspect]
     Dosage: 20 Milligram
     Route: 048
     Dates: start: 20100904, end: 20100907
  10. LENADEX [Suspect]
     Dosage: 20 Milligram
     Route: 048
     Dates: start: 20100912, end: 20100915
  11. LENADEX [Suspect]
     Dosage: 12 Milligram
     Route: 048
     Dates: start: 20100928, end: 20100929
  12. LENADEX [Suspect]
     Dosage: 12 Milligram
     Route: 048
     Dates: start: 20101005, end: 20101006
  13. LENADEX [Suspect]
     Dosage: 12 Milligram
     Route: 048
     Dates: start: 20101012, end: 20101013
  14. LENADEX [Suspect]
     Dosage: 12 Milligram
     Route: 048
     Dates: start: 20101026, end: 20101027
  15. LENADEX [Suspect]
     Dosage: 12 Milligram
     Route: 048
     Dates: start: 20101102, end: 20101103
  16. LENADEX [Suspect]
     Dosage: 12 Milligram
     Route: 048
     Dates: start: 20101109, end: 20101110
  17. LENADEX [Suspect]
     Dosage: 12 Milligram
     Route: 048
     Dates: start: 20101126, end: 20101210
  18. LENADEX [Suspect]
     Dosage: 12 Milligram
     Route: 048
     Dates: start: 20110326, end: 20110327
  19. LENADEX [Suspect]
     Dosage: 12 Milligram
     Route: 048
     Dates: start: 20110402, end: 20110403
  20. LENADEX [Suspect]
     Dosage: 12 Milligram
     Route: 048
     Dates: start: 20110409, end: 20110410
  21. LENADEX [Suspect]
     Dosage: 16 Milligram
     Route: 048
     Dates: start: 20110428, end: 20110429
  22. LENADEX [Suspect]
     Dosage: 16 Milligram
     Route: 048
     Dates: start: 20110512, end: 20110513
  23. OMEPRAL [Concomitant]
     Indication: PROPHYLAXIS
     Dosage: 20 Milligram
     Route: 048
     Dates: start: 20100827, end: 20100830
  24. OMEPRAL [Concomitant]
     Dosage: 20 Milligram
     Route: 048
     Dates: start: 20100904, end: 20100907
  25. OMEPRAL [Concomitant]
     Dosage: 20 Milligram
     Route: 048
     Dates: start: 20100912, end: 20100915
  26. PALGIN [Concomitant]
     Indication: DRUG USE FOR UNKNOWN INDICATION
     Dosage: .5 Milligram
     Route: 048
     Dates: start: 20100106
  27. OSTELUC [Concomitant]
     Indication: DRUG USE FOR UNKNOWN INDICATION
     Dosage: 400 Milligram
     Route: 048
     Dates: start: 20100106
  28. SELBEX [Concomitant]
     Indication: PROPHYLAXIS
     Dosage: 100 Milligram
     Route: 048
     Dates: start: 20100106
  29. GASMOTIN [Concomitant]
     Indication: PROPHYLAXIS
     Dosage: 15 Milligram
     Route: 048
     Dates: start: 20100716, end: 20100912
  30. NATRIX [Concomitant]
     Indication: HYPERTENSION
     Dosage: 1 Milligram
     Route: 048
     Dates: start: 20100701, end: 20100923
  31. BLOPRESS [Concomitant]
     Indication: HYPERTENSION
     Dosage: 8 Milligram
     Route: 048
     Dates: start: 20100702
  32. LAXOBERON [Concomitant]
     Indication: DRUG USE FOR UNKNOWN INDICATION
     Dosage: 10 Drops
     Route: 048
     Dates: start: 20100625, end: 20100927
  33. DUROTEP MT [Concomitant]
     Indication: DRUG USE FOR UNKNOWN INDICATION
     Dosage: 2.1 Milligram
     Route: 062
     Dates: start: 20100715
  34. CALCIUM LACTATE [Concomitant]
     Indication: TETANY
     Dosage: 3 Gram
     Route: 048
     Dates: start: 20100916

REACTIONS (9)
  - Thrombocytopenia [Not Recovered/Not Resolved]
  - Anaemia [Recovered/Resolved]
  - Leukopenia [Recovered/Resolved]
  - Hypomagnesaemia [Recovered/Resolved]
  - Blood alkaline phosphatase increased [Not Recovered/Not Resolved]
  - Cystitis [Recovered/Resolved]
  - Bone pain [Recovering/Resolving]
  - Blood creatinine increased [Recovered/Resolved]
  - Hypocalcaemia [Recovered/Resolved]
